FAERS Safety Report 23778781 (Version 2)
Quarter: 2024Q2

REPORT INFORMATION
  Report Type: Report from Study
  Country: US (occurrence: US)
  Receive Date: 20240424
  Receipt Date: 20240429
  Transmission Date: 20240716
  Serious: Yes (Hospitalization, Other)
  Sender: FDA-Public Use
  Company Number: US-UCBSA-2024016684

PATIENT
  Age: 65 Year
  Sex: Female

DRUGS (1)
  1. LACOSAMIDE [Suspect]
     Active Substance: LACOSAMIDE
     Indication: Seizure
     Dosage: 150 MILLIGRAM, 2X/DAY (BID)

REACTIONS (9)
  - Seizure [Unknown]
  - Hospitalisation [Recovered/Resolved]
  - Brain injury [Not Recovered/Not Resolved]
  - Brain operation [Unknown]
  - Agitation [Not Recovered/Not Resolved]
  - Abulia [Not Recovered/Not Resolved]
  - Fall [Not Recovered/Not Resolved]
  - Product availability issue [Unknown]
  - Therapy interrupted [Unknown]

NARRATIVE: CASE EVENT DATE: 20231201
